FAERS Safety Report 10026921 (Version 1)
Quarter: 2014Q1

REPORT INFORMATION
  Report Type: Spontaneous
  Country: US (occurrence: US)
  Receive Date: 20140321
  Receipt Date: 20140321
  Transmission Date: 20141002
  Serious: Yes (Other)
  Sender: FDA-Public Use
  Company Number: US-BAYER-2014-040940

PATIENT
  Age: 24 Year
  Sex: Female

DRUGS (5)
  1. YASMIN [Suspect]
     Route: 048
  2. OCELLA [Suspect]
     Route: 048
  3. ALLEGRA [Concomitant]
     Dosage: 30 MG, UNK
     Dates: start: 20080404
  4. SINGULAIR [Concomitant]
     Dosage: 10 MG, UNK
     Route: 048
     Dates: start: 20080404, end: 20080604
  5. MULTIVITAMINS [Concomitant]
     Dosage: UNK

REACTIONS (1)
  - Retinal haemorrhage [None]
